FAERS Safety Report 9044090 (Version 2)
Quarter: 2013Q1

REPORT INFORMATION
  Report Type: Spontaneous
  Country: BR (occurrence: BR)
  Receive Date: 20130130
  Receipt Date: 20130305
  Transmission Date: 20140127
  Serious: Yes (Other)
  Sender: FDA-Public Use
  Company Number: PHHY2012BR121003

PATIENT
  Sex: Female
  Weight: 90 kg

DRUGS (2)
  1. ONBREZ [Suspect]
     Dosage: 150 UG, QD
  2. NICOTINELL TTS [Suspect]
     Dosage: 1 DF, DAILY
     Route: 062
     Dates: start: 20121226

REACTIONS (3)
  - Bronchitis [Not Recovered/Not Resolved]
  - Wheezing [Not Recovered/Not Resolved]
  - Dyspnoea [Not Recovered/Not Resolved]
